FAERS Safety Report 19139704 (Version 1)
Quarter: 2021Q2

REPORT INFORMATION
  Report Type: Spontaneous
  Country: US (occurrence: US)
  Receive Date: 20210415
  Receipt Date: 20210415
  Transmission Date: 20210717
  Serious: No
  Sender: FDA-Public Use
  Company Number: US-BEH-2021130309

PATIENT
  Age: 43 Year
  Sex: Female

DRUGS (17)
  1. DIPHENHYDRAMINE. [Concomitant]
     Active Substance: DIPHENHYDRAMINE
  2. KEPPRA [Concomitant]
     Active Substance: LEVETIRACETAM
  3. PREDNISONE. [Concomitant]
     Active Substance: PREDNISONE
  4. OMEPRAZOLE. [Concomitant]
     Active Substance: OMEPRAZOLE
  5. TESSALON [Concomitant]
     Active Substance: BENZONATATE
  6. ACETAMINOPHEN. [Concomitant]
     Active Substance: ACETAMINOPHEN
  7. LAMICTAL [Concomitant]
     Active Substance: LAMOTRIGINE
  8. BENZONATATE. [Concomitant]
     Active Substance: BENZONATATE
  9. BIOTIN [Concomitant]
     Active Substance: BIOTIN
  10. FOLIC ACID. [Concomitant]
     Active Substance: FOLIC ACID
  11. PEPCID AC [Concomitant]
     Active Substance: FAMOTIDINE
  12. TYLENOL [Concomitant]
     Active Substance: ACETAMINOPHEN
  13. HIZENTRA [Suspect]
     Active Substance: HUMAN IMMUNOGLOBULIN G
     Indication: IMMUNODEFICIENCY COMMON VARIABLE
     Dosage: 13 GRAM, QW
     Route: 058
     Dates: start: 20210115
  14. PLAQUENIL [Concomitant]
     Active Substance: HYDROXYCHLOROQUINE SULFATE
  15. EPINEPHRINE. [Concomitant]
     Active Substance: EPINEPHRINE
  16. GAMUNEX [Concomitant]
     Active Substance: HUMAN IMMUNOGLOBULIN G
  17. ALLEGRA [Concomitant]
     Active Substance: FEXOFENADINE HYDROCHLORIDE

REACTIONS (1)
  - Headache [Not Recovered/Not Resolved]

NARRATIVE: CASE EVENT DATE: 20210325
